FAERS Safety Report 11983404 (Version 1)
Quarter: 2016Q1

REPORT INFORMATION
  Report Type: Spontaneous
  Country: DE (occurrence: DK)
  Receive Date: 20160201
  Receipt Date: 20160201
  Transmission Date: 20160526
  Serious: Yes (Hospitalization)
  Sender: FDA-Public Use
  Company Number: DK-MERZ NORTH AMERICA, INC.-16MRZ-00079

PATIENT
  Age: 49 Year
  Sex: Female
  Weight: 70 kg

DRUGS (3)
  1. ASCLERA [Suspect]
     Active Substance: POLIDOCANOL
     Indication: VARICOSE VEIN
     Dosage: UNKNOWN
     Route: 042
     Dates: start: 20151107
  2. PANTOPRAZOL ^ACTAVIS^ (PANTOPRAZOLNATRIUMSESQUIHYDRAT) [Concomitant]
  3. AMLODIPIN ^ACTAVIS^ (AMLODIPINMESILATMONOHYDRAT) [Concomitant]

REACTIONS (3)
  - Phlebitis [None]
  - Chest pain [None]
  - Dyspnoea [None]

NARRATIVE: CASE EVENT DATE: 20151123
